FAERS Safety Report 26023512 (Version 3)
Quarter: 2025Q4

REPORT INFORMATION
  Report Type: Spontaneous
  Country: US (occurrence: US)
  Receive Date: 20251111
  Receipt Date: 20251204
  Transmission Date: 20260118
  Serious: Yes (Death)
  Sender: ASTELLAS
  Company Number: US-ASTELLAS-2025-AER-060841

PATIENT
  Age: 93 Year
  Sex: Male

DRUGS (1)
  1. XTANDI [Suspect]
     Active Substance: ENZALUTAMIDE
     Indication: Product used for unknown indication
     Route: 065

REACTIONS (3)
  - Death [Fatal]
  - Fall [Unknown]
  - Asthenia [Unknown]
